FAERS Safety Report 7353991-3 (Version None)
Quarter: 2011Q1

REPORT INFORMATION
  Report Type: 
  Country: None (occurrence: None)
  Receive Date: 20110315
  Receipt Date: 20110107
  Transmission Date: 20110831
  Serious: Yes (Hospitalization, Other)
  Sender: FDA-Public Use
  Company Number: CA-BAYER-2011-001494

PATIENT
  Age: 58 Year

DRUGS (1)
  1. ALEVE [Suspect]
     Dosage: 1 DF, UNK
     Dates: start: 20101201

REACTIONS (5)
  - HYPERSENSITIVITY [None]
  - RASH ERYTHEMATOUS [None]
  - PRURITUS [None]
  - SWOLLEN TONGUE [None]
  - HYPOAESTHESIA [None]
